FAERS Safety Report 16192046 (Version 7)
Quarter: 2019Q3

REPORT INFORMATION
  Report Type: Spontaneous
  Country: PL (occurrence: PL)
  Receive Date: 20190412
  Receipt Date: 20190725
  Transmission Date: 20191004
  Serious: Yes (Hospitalization, Other)
  Sender: FDA-Public Use
  Company Number: PHHY2019PL082623

PATIENT
  Age: 23 Year
  Sex: Female
  Weight: 65 kg

DRUGS (8)
  1. BASILIXIMAB [Suspect]
     Active Substance: BASILIXIMAB
     Indication: RENAL TRANSPLANT
     Dosage: UNK
     Route: 065
  2. BASILIXIMAB [Suspect]
     Active Substance: BASILIXIMAB
     Indication: IMMUNOSUPPRESSANT DRUG THERAPY
  3. TACROLIMUS. [Suspect]
     Active Substance: TACROLIMUS
     Indication: IMMUNOSUPPRESSANT DRUG THERAPY
  4. TACROLIMUS. [Suspect]
     Active Substance: TACROLIMUS
     Indication: RENAL TRANSPLANT
     Dosage: 0.75, QD
     Route: 048
  5. MYCOPHENOLATE MOFETIL. [Suspect]
     Active Substance: MYCOPHENOLATE MOFETIL
     Indication: IMMUNOSUPPRESSANT DRUG THERAPY
  6. MYCOPHENOLATE MOFETIL. [Suspect]
     Active Substance: MYCOPHENOLATE MOFETIL
     Indication: RENAL TRANSPLANT
     Dosage: UNK
     Route: 065
  7. METILPREDNISOLONE [Suspect]
     Active Substance: METHYLPREDNISOLONE
     Indication: IMMUNOSUPPRESSANT DRUG THERAPY
  8. METILPREDNISOLONE [Suspect]
     Active Substance: METHYLPREDNISOLONE
     Indication: RENAL TRANSPLANT
     Dosage: UNK
     Route: 065

REACTIONS (7)
  - Atypical haemolytic uraemic syndrome [Recovered/Resolved]
  - Disease recurrence [Recovered/Resolved]
  - Renal failure [Unknown]
  - Haemolytic uraemic syndrome [Not Recovered/Not Resolved]
  - Thrombotic microangiopathy [Recovered/Resolved]
  - Complications of transplanted kidney [Recovered/Resolved]
  - Renal impairment [Recovering/Resolving]

NARRATIVE: CASE EVENT DATE: 201802
